FAERS Safety Report 23645375 (Version 1)
Quarter: 2024Q1

REPORT INFORMATION
  Report Type: Spontaneous
  Country: US (occurrence: US)
  Receive Date: 20240318
  Receipt Date: 20240318
  Transmission Date: 20240409
  Serious: No
  Sender: FDA-Public Use
  Company Number: US-BAUSCHBL-2024BNL003242

PATIENT
  Age: 5 Decade
  Sex: Female

DRUGS (1)
  1. MIEBO [Suspect]
     Active Substance: PERFLUOROHEXYLOCTANE
     Indication: Dry eye
     Route: 047
     Dates: end: 2024

REACTIONS (4)
  - Swelling of eyelid [Recovering/Resolving]
  - Eyelid irritation [Recovering/Resolving]
  - Periorbital swelling [Recovering/Resolving]
  - Erythema of eyelid [Recovering/Resolving]
